FAERS Safety Report 5448162-1 (Version None)
Quarter: 2007Q3

REPORT INFORMATION
  Report Type: 
  Country: None (occurrence: None)
  Receive Date: 20070905
  Receipt Date: 20070821
  Transmission Date: 20080115
  Serious: Yes (Other)
  Sender: FDA-Public Use
  Company Number: 100#08#2007-03288

PATIENT
  Age: 10 Year
  Sex: Male

DRUGS (3)
  1. CEFTAZIDIME [Suspect]
     Indication: ANTIBIOTIC PROPHYLAXIS
  2. CYCLOSPORINE [Suspect]
     Indication: BRONCHOPULMONARY ASPERGILLOSIS ALLERGIC
  3. GENTAMICIN [Suspect]
     Indication: ANTIBIOTIC PROPHYLAXIS
     Dosage: 9.99 MG/KG; INTRAVENOUS (NOT OTHERWISE SPECIFIED)
     Route: 042

REACTIONS (1)
  - RENAL FAILURE ACUTE [None]
